FAERS Safety Report 8136790-4 (Version None)
Quarter: 2012Q1

REPORT INFORMATION
  Report Type: 
  Country: None (occurrence: None)
  Receive Date: 20120214
  Receipt Date: 20120207
  Transmission Date: 20120608
  Serious: Yes (Other)
  Sender: FDA-Public Use
  Company Number: BR-PFIZER INC-2012006692

PATIENT
  Sex: Female

DRUGS (2)
  1. ALPRAZOLAM [Suspect]
     Indication: DEPRESSION
     Dosage: 0.5 MG, 1X/DAY
     Route: 048
     Dates: start: 19910101
  2. TOFRANIL [Concomitant]
     Indication: DEPRESSION
     Dosage: UNK
     Dates: start: 19910101

REACTIONS (6)
  - PANIC DISORDER [None]
  - DEPRESSION [None]
  - DRUG INEFFECTIVE [None]
  - BREAST CANCER [None]
  - DRUG DEPENDENCE [None]
  - MALAISE [None]
